FAERS Safety Report 12522948 (Version 1)
Quarter: 2016Q3

REPORT INFORMATION
  Report Type: Spontaneous
  Country: BR (occurrence: BR)
  Receive Date: 20160701
  Receipt Date: 20160701
  Transmission Date: 20161109
  Serious: Yes (Other)
  Sender: FDA-Public Use
  Company Number: BR-009507513-1606BRA011066

PATIENT
  Age: 51 Year
  Sex: Female
  Weight: 58 kg

DRUGS (6)
  1. PANTOPRAZOLE [Concomitant]
     Active Substance: PANTOPRAZOLE SODIUM
     Indication: GASTROOESOPHAGEAL REFLUX DISEASE
     Dosage: 40 MG IN FASTING
  2. MOTILIUM [Concomitant]
     Active Substance: DOMPERIDONE
     Indication: GASTROOESOPHAGEAL REFLUX DISEASE
     Dosage: WHENEVER IS NECESSARY
  3. VYTORIN [Suspect]
     Active Substance: EZETIMIBE\SIMVASTATIN
     Indication: HYPERTENSION
     Dosage: UNK
     Route: 048
     Dates: start: 2008
  4. DUCAMARA 30CH [Concomitant]
  5. ACONITUM NATELLLUS 30CH [Concomitant]
  6. CELESTAMINE [Concomitant]
     Active Substance: BETAMETHASONE\DEXCHLORPHENIRAMINE MALEATE
     Indication: HYPERSENSITIVITY
     Dosage: 1 TABLET, Q12H, WHENEVER IS NECESSARY
     Route: 048

REACTIONS (7)
  - Oral herpes [Unknown]
  - Allergic respiratory symptom [Unknown]
  - Gastrooesophageal reflux disease [Recovered/Resolved]
  - Hysterectomy [Recovered/Resolved]
  - Sudden hearing loss [Recovered/Resolved with Sequelae]
  - Product use issue [Unknown]
  - Oophorectomy [Recovered/Resolved]

NARRATIVE: CASE EVENT DATE: 2008
